FAERS Safety Report 12758968 (Version 1)
Quarter: 2016Q3

REPORT INFORMATION
  Report Type: Spontaneous
  Country: PE (occurrence: PE)
  Receive Date: 20160919
  Receipt Date: 20160919
  Transmission Date: 20161109
  Serious: Yes (Other)
  Sender: FDA-Public Use
  Company Number: PE-UCBSA-2016035359

PATIENT
  Age: 17 Year
  Sex: Female

DRUGS (1)
  1. KEPPRA [Suspect]
     Active Substance: LEVETIRACETAM
     Indication: EPILEPSY
     Dosage: 500 MG, 2X/DAY (BID)
     Route: 048
     Dates: start: 20150916

REACTIONS (3)
  - Glomus tumour [Not Recovered/Not Resolved]
  - Lymphadenopathy [Unknown]
  - Branchial cyst [Unknown]

NARRATIVE: CASE EVENT DATE: 20160317
